FAERS Safety Report 17652134 (Version 1)
Quarter: 2020Q2

REPORT INFORMATION
  Report Type: Report from Study
  Country: None (occurrence: US)
  Receive Date: 20200409
  Receipt Date: 20200409
  Transmission Date: 20200713
  Serious: Yes (Death, Other)
  Sender: FDA-Public Use
  Company Number: US-ABBVIE-19K-163-3153935-00

PATIENT
  Sex: Male
  Weight: 88 kg

DRUGS (1)
  1. IMBRUVICA [Suspect]
     Active Substance: IBRUTINIB
     Indication: CHRONIC LYMPHOCYTIC LEUKAEMIA
     Dosage: 420 MG, QD
     Route: 065
     Dates: start: 20160627, end: 20161207

REACTIONS (3)
  - Cardiovascular disorder [Unknown]
  - Coronary artery disease [Unknown]
  - Myocardial infarction [Fatal]
